FAERS Safety Report 19939266 (Version 4)
Quarter: 2022Q2

REPORT INFORMATION
  Report Type: Spontaneous
  Country: NL (occurrence: NL)
  Receive Date: 20211011
  Receipt Date: 20220516
  Transmission Date: 20220721
  Serious: Yes (Death, Hospitalization, Other)
  Sender: FDA-Public Use
  Company Number: NL-AMGEN-NLDSP2021153111

PATIENT
  Age: 62 Year
  Sex: Male
  Weight: 91 kg

DRUGS (10)
  1. CARFILZOMIB [Suspect]
     Active Substance: CARFILZOMIB
     Indication: Plasma cell myeloma
     Dosage: 43 MILLIGRAM, QD
     Route: 065
     Dates: start: 20210609, end: 20210610
  2. CARFILZOMIB [Suspect]
     Active Substance: CARFILZOMIB
     Dosage: 122 MILLIGRAM
     Route: 042
     Dates: end: 20210715
  3. DEXAMETHASONE [Suspect]
     Active Substance: DEXAMETHASONE
     Indication: Plasma cell myeloma
     Dosage: 20 MILLIGRAM, DAY 1,2,8,9,15,16,22 AND 23
     Route: 048
     Dates: start: 20210609
  4. DEXAMETHASONE [Suspect]
     Active Substance: DEXAMETHASONE
     Dosage: 20 MILLIGRAM, DAY 1,2,8,9,15,16,22 AND 23
     Route: 048
     Dates: end: 20210714
  5. CYCLOPHOSPHAMIDE [Suspect]
     Active Substance: CYCLOPHOSPHAMIDE
     Indication: Plasma cell myeloma
     Dosage: 640 MILLIGRAM
     Route: 042
     Dates: start: 20210730, end: 20210801
  6. FLUDARABINE [Suspect]
     Active Substance: FLUDARABINE PHOSPHATE
     Indication: Plasma cell myeloma
     Dosage: 65 MILLIGRAM, QD
     Route: 042
     Dates: start: 20210730, end: 20210801
  7. MODERNA COVID-19 VACCINE [Concomitant]
     Active Substance: ELASOMERAN
     Indication: Prophylaxis
     Dosage: UNK
     Route: 065
     Dates: start: 20210506, end: 20210506
  8. CARBASPIRIN [Concomitant]
     Active Substance: CARBASPIRIN
     Indication: Prophylaxis
     Dosage: UNK
     Route: 065
     Dates: end: 20210526
  9. PANTOPRAZOLE [Concomitant]
     Active Substance: PANTOPRAZOLE
     Indication: Prophylaxis
     Dosage: UNK
     Route: 065
  10. VALACYCLOVIR [Concomitant]
     Active Substance: VALACYCLOVIR HYDROCHLORIDE
     Indication: Prophylaxis
     Dosage: UNK
     Route: 065

REACTIONS (2)
  - Plasma cell myeloma [Fatal]
  - Renal failure [Fatal]

NARRATIVE: CASE EVENT DATE: 20210802
